FAERS Safety Report 7398852-9 (Version None)
Quarter: 2011Q2

REPORT INFORMATION
  Report Type: 
  Country: None (occurrence: None)
  Receive Date: 20110407
  Receipt Date: 20110328
  Transmission Date: 20111010
  Serious: Yes (Other)
  Sender: FDA-Public Use
  Company Number: TR-RANBAXY-2011RR-43509

PATIENT
  Age: 56 Year
  Sex: Male

DRUGS (1)
  1. CIPROFLOXACIN [Suspect]
     Dosage: 500 MG, BID

REACTIONS (3)
  - ABDOMINAL PAIN [None]
  - PRURITUS [None]
  - HEPATOTOXICITY [None]
